FAERS Safety Report 18250778 (Version 1)
Quarter: 2020Q3

REPORT INFORMATION
  Report Type: Spontaneous
  Country: JP (occurrence: JP)
  Receive Date: 20200909
  Receipt Date: 20200909
  Transmission Date: 20201103
  Serious: Yes (Hospitalization)
  Sender: FDA-Public Use
  Company Number: JP-ANIPHARMA-2020-JP-000323

PATIENT
  Sex: Male

DRUGS (2)
  1. MERISLON [Concomitant]
     Active Substance: BETAHISTINE MESILATE
     Route: 048
  2. CANDESARTAN CILEXETIL. [Suspect]
     Active Substance: CANDESARTAN CILEXETIL
     Indication: PRODUCT USED FOR UNKNOWN INDICATION
     Dosage: 4 MG, AFTER BREAKFAST / 8 MG UNK / 12 MG UNK
     Route: 048
     Dates: start: 2003

REACTIONS (2)
  - Gait disturbance [Unknown]
  - Vertigo [Unknown]
